FAERS Safety Report 5366528-5 (Version None)
Quarter: 2007Q2

REPORT INFORMATION
  Report Type: 
  Country: None (occurrence: None)
  Receive Date: 20070622
  Receipt Date: 20070612
  Transmission Date: 20071010
  Serious: Yes (Other)
  Sender: FDA-Public Use
  Company Number: US-PFIZER INC-2007048489

PATIENT
  Sex: Female
  Weight: 100 kg

DRUGS (4)
  1. DEPO-PROVERA SUSPENSION/INJ [Suspect]
     Indication: CONTRACEPTION
     Route: 030
  2. DEPO-PROVERA SUSPENSION/INJ [Suspect]
     Route: 030
     Dates: start: 20070202, end: 20070202
  3. DEPO-PROVERA SUSPENSION/INJ [Suspect]
     Route: 030
     Dates: start: 20070420, end: 20070420
  4. VERAPAMIL HYDROCHLORIDE [Suspect]
     Indication: HYPERTENSION

REACTIONS (10)
  - ALOPECIA [None]
  - AMENORRHOEA [None]
  - DRY MOUTH [None]
  - HOT FLUSH [None]
  - NIGHT SWEATS [None]
  - ORAL DISCOMFORT [None]
  - OSTEOPOROSIS [None]
  - PANIC ATTACK [None]
  - TONGUE DISORDER [None]
  - WEIGHT INCREASED [None]
